FAERS Safety Report 22146023 (Version 1)
Quarter: 2023Q1

REPORT INFORMATION
  Report Type: Spontaneous
  Country: US (occurrence: US)
  Receive Date: 20230328
  Receipt Date: 20230328
  Transmission Date: 20230417
  Serious: Yes (Life-Threatening, Hospitalization, Other)
  Sender: FDA-Public Use
  Company Number: US-drreddys-SPO/USA/23/0162718

PATIENT
  Age: 37 Year
  Sex: Female

DRUGS (1)
  1. SUMATRIPTAN SUCCINATE [Suspect]
     Active Substance: SUMATRIPTAN SUCCINATE
     Indication: Migraine

REACTIONS (2)
  - Coronary artery dissection [Unknown]
  - Arterial intramural haematoma [Unknown]
